FAERS Safety Report 23808353 (Version 1)
Quarter: 2024Q2

REPORT INFORMATION
  Report Type: Spontaneous
  Country: IN (occurrence: IN)
  Receive Date: 20240502
  Receipt Date: 20240502
  Transmission Date: 20240715
  Serious: Yes (Hospitalization)
  Sender: FDA-Public Use
  Company Number: IN-MYLANLABS-2024M1039211

PATIENT
  Age: 4 Year
  Sex: Male

DRUGS (7)
  1. AMOXICILLIN\CLAVULANIC ACID [Suspect]
     Active Substance: AMOXICILLIN\CLAVULANIC ACID
     Indication: Ear infection
     Dosage: UNK
     Route: 065
  2. METHOTREXATE [Suspect]
     Active Substance: METHOTREXATE
     Indication: Still^s disease
     Dosage: 15 MILLIGRAM/SQ. METER, QW
     Route: 048
  3. METHYLPREDNISOLONE [Suspect]
     Active Substance: METHYLPREDNISOLONE
     Indication: Evidence based treatment
     Dosage: UNK; HIGH DOSE
     Route: 065
  4. FOLIC ACID [Suspect]
     Active Substance: FOLIC ACID
     Indication: Still^s disease
     Dosage: 5 MILLIGRAM, QW
     Route: 065
  5. AZITHROMYCIN [Concomitant]
     Active Substance: AZITHROMYCIN
     Indication: Ear infection
     Dosage: UNK
     Route: 065
  6. TOCILIZUMAB [Suspect]
     Active Substance: TOCILIZUMAB
     Indication: Still^s disease
     Dosage: UNK, INFUSION, BIWEEKLY
     Route: 065
  7. CLOXACILLIN [Concomitant]
     Active Substance: CLOXACILLIN
     Indication: Evidence based treatment
     Dosage: UNK
     Route: 065

REACTIONS (4)
  - Achromobacter infection [Recovering/Resolving]
  - Sepsis [Recovering/Resolving]
  - Drug ineffective [Unknown]
  - Off label use [Unknown]
